FAERS Safety Report 11204297 (Version 1)
Quarter: 2015Q2

REPORT INFORMATION
  Report Type: Report from Study
  Country: VE (occurrence: VE)
  Receive Date: 20150620
  Receipt Date: 20150620
  Transmission Date: 20150821
  Serious: Yes (Other)
  Sender: FDA-Public Use
  Company Number: PHHY2015VE070009

PATIENT
  Age: 75 Year
  Sex: Female

DRUGS (4)
  1. FLEXURE [Concomitant]
     Indication: CHONDROPATHY
     Route: 065
  2. ACLASTA [Suspect]
     Active Substance: ZOLEDRONIC ACID
     Indication: OSTEOPOROSIS
     Dosage: 5 MG, ANNUALLY
     Route: 042
     Dates: start: 201108, end: 201308
  3. NORVASC [Concomitant]
     Active Substance: AMLODIPINE BESYLATE
     Indication: BLOOD PRESSURE ABNORMAL
     Dosage: 10 MG, QD
     Route: 065
  4. CALCIBON (CALCIUM CITRATE) [Concomitant]
     Indication: BONE DISORDER
     Dosage: UNK, QD
     Route: 065
     Dates: start: 2014

REACTIONS (4)
  - Varicose vein [Recovering/Resolving]
  - Cerebral infarction [Recovering/Resolving]
  - Dizziness postural [Recovering/Resolving]
  - Pyrexia [Recovering/Resolving]

NARRATIVE: CASE EVENT DATE: 201308
